FAERS Safety Report 8064143-6 (Version None)
Quarter: 2012Q1

REPORT INFORMATION
  Report Type: 
  Country: None (occurrence: None)
  Receive Date: 20120123
  Receipt Date: 20120113
  Transmission Date: 20120608
  Serious: Yes (Hospitalization)
  Sender: FDA-Public Use
  Company Number: FR-GLAXOSMITHKLINE-B0775131A

PATIENT
  Sex: Male

DRUGS (3)
  1. FLUTICASONE PROPIONATE/SALMETEROL [Suspect]
     Indication: BRONCHITIS
     Route: 065
     Dates: start: 20110527, end: 20110527
  2. PYOSTACINE [Suspect]
     Indication: BRONCHITIS
     Route: 048
     Dates: start: 20110527, end: 20110527
  3. ACETAMINOPHEN [Suspect]
     Indication: BRONCHITIS
     Route: 048
     Dates: start: 20110527, end: 20110527

REACTIONS (3)
  - ANGIOEDEMA [None]
  - PRURITUS [None]
  - URTICARIA [None]
